FAERS Safety Report 7328818 (Version 5)
Quarter: 2013Q1

REPORT INFORMATION
  Report Type: Report from Study
  Country: DE (occurrence: DE)
  Receive Date: 20100323
  Receipt Date: 20130213
  Transmission Date: 20140127
  Serious: Yes (Hospitalization)
  Sender: FDA-Public Use
  Company Number: PHHO2010DE03903

PATIENT
  Age: 73 Year
  Sex: Female

DRUGS (7)
  1. CYCLOSPORINE [Suspect]
     Indication: RENAL TRANSPLANT
     Dosage: 400 MG / DAY (PRE-OP)
     Route: 048
     Dates: start: 20091127, end: 20091127
  2. CYCLOSPORINE [Suspect]
     Dosage: 400 MG, BID
     Route: 048
     Dates: start: 20091128
  3. SIMULECT [Suspect]
     Indication: RENAL TRANSPLANT
     Dosage: ONCE/SINGLE (DAY 0)
     Route: 042
     Dates: start: 20091128, end: 20091128
  4. SIMULECT [Suspect]
     Dosage: ONCE/SINGLE (DAY 4)
     Route: 042
     Dates: start: 20091202, end: 20091202
  5. MYFORTIC [Concomitant]
     Indication: RENAL TRANSPLANT
     Dosage: 1440 MG / DAY (PRE-OP)
     Route: 048
     Dates: start: 20091127, end: 20091127
  6. MYFORTIC [Concomitant]
     Dosage: 1440 MG, BID
     Route: 048
     Dates: start: 20091128
  7. IMUREK [Concomitant]

REACTIONS (1)
  - Grand mal convulsion [Recovering/Resolving]
